FAERS Safety Report 21952663 (Version 2)
Quarter: 2023Q2

REPORT INFORMATION
  Report Type: Spontaneous
  Country: JP (occurrence: JP)
  Receive Date: 20230203
  Receipt Date: 20230403
  Transmission Date: 20230721
  Serious: Yes (Other)
  Sender: FDA-Public Use
  Company Number: JP-MALLINCKRODT-T202300856

PATIENT
  Age: 1 Day
  Sex: Male
  Weight: 3 kg

DRUGS (1)
  1. NITRIC OXIDE [Suspect]
     Active Substance: NITRIC OXIDE
     Indication: Newborn persistent pulmonary hypertension
     Dosage: UNK
     Route: 055

REACTIONS (6)
  - Pulmonary vein stenosis [Not Recovered/Not Resolved]
  - Condition aggravated [Not Recovered/Not Resolved]
  - Pulmonary congestion [Unknown]
  - Anomalous pulmonary venous connection [Unknown]
  - Cyanosis neonatal [Unknown]
  - Disease recurrence [Unknown]
